FAERS Safety Report 6994744-5 (Version None)
Quarter: 2010Q3

REPORT INFORMATION
  Report Type: 
  Country: None (occurrence: None)
  Receive Date: 20100917
  Receipt Date: 20090424
  Transmission Date: 20110219
  Serious: Yes (Other)
  Sender: FDA-Public Use
  Company Number: HQWYE049205AUG04

PATIENT
  Sex: Female
  Weight: 79.9 kg

DRUGS (6)
  1. PREMPRO [Suspect]
     Indication: HORMONE REPLACEMENT THERAPY
  2. PROVERA [Suspect]
  3. COMBIPATCH [Suspect]
  4. PREMARIN [Suspect]
  5. SYNTHROID [Concomitant]
  6. UNSPECIFIED DIURETIC [Concomitant]

REACTIONS (1)
  - BREAST CANCER [None]
